FAERS Safety Report 17103790 (Version 1)
Quarter: 2019Q4

REPORT INFORMATION
  Report Type: Spontaneous
  Country: US (occurrence: US)
  Receive Date: 20191107
  Receipt Date: 20191107
  Transmission Date: 20200122
  Serious: Yes (Hospitalization)
  Sender: FDA-Public Use
  Company Number: None

PATIENT
  Age: 68 Year
  Sex: Female

DRUGS (1)
  1. HUMIRA [Suspect]
     Active Substance: ADALIMUMAB
     Dosage: ?          OTHER DOSE:40/0.4 MG/ML;?
     Route: 058

REACTIONS (2)
  - Peripheral swelling [None]
  - Vaccination site reaction [None]

NARRATIVE: CASE EVENT DATE: 20191107
